FAERS Safety Report 23240298 (Version 2)
Quarter: 2024Q1

REPORT INFORMATION
  Report Type: Spontaneous
  Country: US (occurrence: US)
  Receive Date: 20231129
  Receipt Date: 20240220
  Transmission Date: 20240410
  Serious: No
  Sender: FDA-Public Use
  Company Number: US-BAYER-2023A167430

PATIENT
  Age: 42 Year
  Sex: Male

DRUGS (1)
  1. JIVI [Suspect]
     Active Substance: DAMOCTOCOG ALFA PEGOL
     Indication: Factor VIII deficiency
     Dosage: UNK UNK, OW
     Route: 042
     Dates: start: 202307

REACTIONS (2)
  - Contusion [None]
  - Haemorrhage [None]

NARRATIVE: CASE EVENT DATE: 20230911
